FAERS Safety Report 5500381-1 (Version None)
Quarter: 2007Q4

REPORT INFORMATION
  Report Type: 
  Country: None (occurrence: None)
  Receive Date: 20071024
  Receipt Date: 20071024
  Transmission Date: 20080405
  Serious: Yes (Hospitalization)
  Sender: FDA-Public Use
  Company Number: None

PATIENT
  Sex: Female
  Weight: 86.3 kg

DRUGS (2)
  1. TAXOTERE [Suspect]
     Dosage: 198 MG
  2. GEMCITABINE HCL [Suspect]
     Dosage: 3438 MG

REACTIONS (2)
  - ABDOMINAL PAIN [None]
  - CONSTIPATION [None]
